FAERS Safety Report 17897262 (Version 2)
Quarter: 2020Q4

REPORT INFORMATION
  Report Type: Spontaneous
  Country: US (occurrence: US)
  Receive Date: 20200615
  Receipt Date: 20201218
  Transmission Date: 20210113
  Serious: Yes (Other)
  Sender: FDA-Public Use
  Company Number: US-MYLANLABS-2020M1055984

PATIENT
  Age: 55 Year
  Sex: Male
  Weight: 92.98 kg

DRUGS (6)
  1. VALSARTAN/HYDROCHLOORTHIAZIDE AUROBINDO [Suspect]
     Active Substance: HYDROCHLOROTHIAZIDE\VALSARTAN
     Indication: HYPERTENSION
     Dosage: UNK
     Dates: start: 20130627, end: 20170905
  2. FISH OIL [Concomitant]
     Active Substance: FISH OIL
     Dosage: 100 MILLIGRAM, QD
     Route: 048
     Dates: start: 2015
  3. VITAMIN B12 [Concomitant]
     Active Substance: CYANOCOBALAMIN
     Dosage: 1000 MICROGRAM, QD
     Route: 048
  4. HYDROCHLOROTHIAZIDE,VALSARTAN MYLAN [Suspect]
     Active Substance: HYDROCHLOROTHIAZIDE\VALSARTAN
     Indication: HYPERTENSION
     Dosage: UNK
     Dates: start: 20121103, end: 20130627
  5. VITAMIN C [Concomitant]
     Active Substance: ASCORBIC ACID
     Dosage: 500 MILLIGRAM, QD
     Route: 048
     Dates: start: 2015
  6. ATORVASTATIN [Concomitant]
     Active Substance: ATORVASTATIN
     Dosage: 80 MILLIGRAM, QD
     Route: 048

REACTIONS (4)
  - Gastric cancer [Recovered/Resolved]
  - Large intestine polyp [Unknown]
  - Gastric polyps [Recovered/Resolved]
  - Hepatic neoplasm [Unknown]

NARRATIVE: CASE EVENT DATE: 20160325
